FAERS Safety Report 12583720 (Version 3)
Quarter: 2016Q4

REPORT INFORMATION
  Report Type: Report from Study
  Country: DE (occurrence: DE)
  Receive Date: 20160722
  Receipt Date: 20161104
  Transmission Date: 20170207
  Serious: Yes (Death, Hospitalization, Other)
  Sender: FDA-Public Use
  Company Number: DE-ASTELLAS-2016US025711

PATIENT
  Age: 77 Year
  Sex: Male
  Weight: 65 kg

DRUGS (22)
  1. PLACEBO [Suspect]
     Active Substance: UNSPECIFIED INGREDIENT
     Indication: PROSTATE CANCER
     Dosage: UNK UNK, UNKNOWN FREQ.
     Route: 065
     Dates: start: 20160331, end: 201606
  2. TEBONIN                            /01003103/ [Concomitant]
     Indication: PROPHYLAXIS
     Route: 048
     Dates: start: 20150102
  3. NOVALGIN [Concomitant]
     Active Substance: METAMIZOLE SODIUM
     Indication: PROCTALGIA
     Dosage: UNK UNK, AS NEEDED (MAX. 4X40 GTT)
     Route: 048
     Dates: start: 20151217
  4. ENZALUTAMIDE [Suspect]
     Active Substance: ENZALUTAMIDE
     Indication: PROSTATE CANCER
     Route: 065
     Dates: start: 20150416, end: 20160330
  5. FORTECORTIN                        /00016001/ [Suspect]
     Active Substance: DEXAMETHASONE
     Dosage: 8 MG, ONCE DAILY AS NEEDED FOR CHEMOTHERAPY THREE DAYS
     Route: 042
     Dates: start: 20160331
  6. ATORVASTATIN [Concomitant]
     Active Substance: ATORVASTATIN
     Indication: AORTIC VALVE CALCIFICATION
     Route: 048
     Dates: start: 2008
  7. TAMSULOSIN [Concomitant]
     Active Substance: TAMSULOSIN
     Indication: BENIGN PROSTATIC HYPERPLASIA
     Dosage: 0.4 MG, ONCE DAILY
     Route: 048
     Dates: start: 2014
  8. IBUPROFEN. [Concomitant]
     Active Substance: IBUPROFEN
     Indication: FIBROMA
     Dosage: UNK UNK, AS NEEDED
     Route: 048
     Dates: start: 20151002
  9. DECORTIN [Suspect]
     Active Substance: PREDNISONE
     Indication: PROSTATE CANCER
     Route: 065
     Dates: start: 20150416
  10. NEULASTA [Suspect]
     Active Substance: PEGFILGRASTIM
     Indication: CHEMOTHERAPY
  11. NEULASTA [Suspect]
     Active Substance: PEGFILGRASTIM
     Indication: PROPHYLAXIS
  12. LYRICA [Concomitant]
     Active Substance: PREGABALIN
     Indication: PROCTALGIA
     Route: 048
     Dates: start: 20160107
  13. DOCETAXEL. [Suspect]
     Active Substance: DOCETAXEL
     Indication: PROSTATE CANCER
     Route: 065
     Dates: start: 20160331
  14. NEULASTA [Suspect]
     Active Substance: PEGFILGRASTIM
     Indication: PROPHYLAXIS
     Dosage: 6 MG (ONE APPLICATION), ONCE AFTER CHEMOTHERAPY
     Route: 058
     Dates: start: 20160422
  15. ASPIRIN. [Concomitant]
     Active Substance: ASPIRIN
     Indication: AORTIC VALVE CALCIFICATION
     Route: 048
     Dates: start: 2008
  16. MOVICOL [Concomitant]
     Active Substance: POLYETHYLENE GLYCOL 3350\POTASSIUM CHLORIDE\SODIUM BICARBONATE\SODIUM CHLORIDE
     Indication: PRODUCT USED FOR UNKNOWN INDICATION
     Dosage: 1 SAC, ONCE DAILY
     Route: 048
     Dates: start: 20160307
  17. DECORTIN [Suspect]
     Active Substance: PREDNISONE
     Indication: PROPHYLAXIS
  18. FORTECORTIN                        /00016001/ [Suspect]
     Active Substance: DEXAMETHASONE
     Indication: PROPHYLAXIS
     Dosage: 8 MG, ONCE DAILY AS NEEDED FOR CHEMOTHERAPY THREE DAYS
     Route: 048
     Dates: start: 20160330
  19. OXYGESIC [Concomitant]
     Active Substance: OXYCODONE
     Indication: PROCTALGIA
     Dosage: 5 MG, ONCE DAILY AS NEEDED
     Route: 048
     Dates: start: 20160307
  20. ALLOPURINOL. [Concomitant]
     Active Substance: ALLOPURINOL
     Indication: GOUT
     Route: 048
     Dates: start: 2008
  21. CANDESARTAN [Concomitant]
     Active Substance: CANDESARTAN
     Indication: AORTIC VALVE CALCIFICATION
     Route: 048
     Dates: start: 201506
  22. TARGIN [Concomitant]
     Active Substance: NALOXONE HYDROCHLORIDE\OXYCODONE HYDROCHLORIDE
     Indication: PROCTALGIA
     Route: 048
     Dates: start: 20160107

REACTIONS (3)
  - Diverticulitis [Recovered/Resolved]
  - Large intestine perforation [Recovered/Resolved]
  - Malignant neoplasm progression [Fatal]

NARRATIVE: CASE EVENT DATE: 20160702
